FAERS Safety Report 9701380 (Version 3)
Quarter: 2015Q3

REPORT INFORMATION
  Report Type: Spontaneous
  Country: US (occurrence: US)
  Receive Date: 20131121
  Receipt Date: 20150803
  Transmission Date: 20151125
  Serious: No
  Sender: FDA-Public Use
  Company Number: US-GILEAD-2008-0016831

PATIENT
  Age: 72 Year
  Sex: Female
  Weight: 79.83 kg

DRUGS (8)
  1. LANOXIN [Concomitant]
     Active Substance: DIGOXIN
     Route: 048
  2. OXYGEN. [Concomitant]
     Active Substance: OXYGEN
     Route: 055
  3. LOTREL [Concomitant]
     Active Substance: AMLODIPINE BESYLATE\BENAZEPRIL HYDROCHLORIDE
     Route: 048
  4. COUMADIN [Concomitant]
     Active Substance: WARFARIN SODIUM
     Route: 048
  5. DEMADEX [Concomitant]
     Active Substance: TORSEMIDE
     Route: 048
  6. CELEBREX [Concomitant]
     Active Substance: CELECOXIB
     Route: 048
  7. LETAIRIS [Suspect]
     Active Substance: AMBRISENTAN
     Indication: PULMONARY ARTERIAL HYPERTENSION
     Route: 048
     Dates: start: 20071214
  8. MIRAPEX [Concomitant]
     Active Substance: PRAMIPEXOLE DIHYDROCHLORIDE
     Dosage: QHS
     Route: 048

REACTIONS (4)
  - Fatigue [Unknown]
  - Hypersomnia [Unknown]
  - Mobility decreased [Unknown]
  - Oedema peripheral [Unknown]
